FAERS Safety Report 7009127-1 (Version None)
Quarter: 2010Q3

REPORT INFORMATION
  Report Type: 
  Country: None (occurrence: None)
  Receive Date: 20100923
  Receipt Date: 20100913
  Transmission Date: 20110219
  Serious: Yes (Other)
  Sender: FDA-Public Use
  Company Number: US-RB-013960-10

PATIENT
  Age: 81 Year
  Sex: Female

DRUGS (3)
  1. MUCINEX [Suspect]
     Indication: MULTIPLE ALLERGIES
     Dosage: PRODUCT TAKEN FOR A MONTH.
     Route: 048
     Dates: start: 20100401
  2. MUCINEX [Suspect]
     Route: 048
     Dates: start: 20100907
  3. MUCINEX DM [Suspect]
     Dosage: PATIENT TOOK ONE PILL SATURDAY NIGHT, ONE SUNDAY MORNING AND ONE SUNDAY NIGHT.
     Route: 048
     Dates: start: 20100911

REACTIONS (6)
  - DIZZINESS [None]
  - FAECES DISCOLOURED [None]
  - INCORRECT DRUG ADMINISTRATION DURATION [None]
  - NAUSEA [None]
  - NO ADVERSE EVENT [None]
  - OFF LABEL USE [None]
